FAERS Safety Report 5463220-3 (Version None)
Quarter: 2007Q3

REPORT INFORMATION
  Report Type: 
  Country: None (occurrence: None)
  Receive Date: 20070920
  Receipt Date: 20070917
  Transmission Date: 20080115
  Serious: Yes (Hospitalization)
  Sender: FDA-Public Use
  Company Number: B0487245A

PATIENT
  Sex: Female
  Weight: 123 kg

DRUGS (2)
  1. TOPOTECAN HYDROCHLORIDE [Suspect]
     Indication: OVARIAN CANCER
     Dosage: 1.5MG PER DAY
     Route: 042
     Dates: start: 20070910
  2. CARBOPLATIN [Suspect]
     Indication: OVARIAN CANCER
     Dosage: 752.5MG MONTHLY
     Route: 042
     Dates: start: 20070912

REACTIONS (5)
  - AGITATION [None]
  - DYSPNOEA [None]
  - ERYTHEMA [None]
  - FLUSHING [None]
  - HYPERSENSITIVITY [None]
